FAERS Safety Report 8101265-5 (Version None)
Quarter: 2012Q1

REPORT INFORMATION
  Report Type: 
  Country: None (occurrence: None)
  Receive Date: 20120129
  Receipt Date: 20110919
  Transmission Date: 20120608
  Serious: No
  Sender: FDA-Public Use
  Company Number: US-ABBOTT-11P-163-0856201-00

PATIENT
  Age: 74 Year
  Sex: Male

DRUGS (5)
  1. HUMIRA [Suspect]
     Indication: RHEUMATOID ARTHRITIS
     Dates: start: 20110701
  2. GLYBURIDE [Concomitant]
     Indication: DIABETES MELLITUS
     Dosage: DAILY
  3. METFORMIN HCL [Concomitant]
     Indication: DIABETES MELLITUS
     Dosage: DAILY
  4. LANTUS [Concomitant]
     Indication: DIABETES MELLITUS
     Dosage: INSULIN IN THE MORNING
  5. NAPROXEN [Concomitant]
     Indication: DIABETES MELLITUS
     Dosage: DAILY

REACTIONS (2)
  - DYSPNOEA [None]
  - URTICARIA [None]
